FAERS Safety Report 10102043 (Version 1)
Quarter: 2014Q2

REPORT INFORMATION
  Report Type: Spontaneous
  Country: US (occurrence: US)
  Receive Date: 20140424
  Receipt Date: 20140424
  Transmission Date: 20141212
  Serious: Yes (Other)
  Sender: FDA-Public Use
  Company Number: US-SA-2014SA052446

PATIENT
  Age: 74 Year
  Sex: Female

DRUGS (1)
  1. RENVELA [Suspect]
     Indication: RENAL FAILURE CHRONIC
     Dosage: WITH CRANBERRY JUICE STARTED THREE MONTHS AGO, WITH HER LUNCH
     Route: 048
     Dates: start: 2014

REACTIONS (3)
  - Eye haemorrhage [Not Recovered/Not Resolved]
  - Blindness unilateral [Not Recovered/Not Resolved]
  - Underdose [Unknown]
